FAERS Safety Report 7399437-0 (Version None)
Quarter: 2011Q2

REPORT INFORMATION
  Report Type: 
  Country: None (occurrence: None)
  Receive Date: 20110407
  Receipt Date: 20110325
  Transmission Date: 20111010
  Serious: Yes (Hospitalization, Other)
  Sender: FDA-Public Use
  Company Number: PHHY2010TW88886

PATIENT
  Sex: Male

DRUGS (1)
  1. GLEEVEC [Suspect]
     Indication: GASTROINTESTINAL STROMAL TUMOUR
     Dosage: 100 MG, 600 MG, UNK
     Route: 048
     Dates: start: 20090701

REACTIONS (13)
  - WEIGHT DECREASED [None]
  - BLOOD URINE [None]
  - ORAL PAIN [None]
  - NEOPLASM MALIGNANT [None]
  - HAEMATOCHEZIA [None]
  - MALAISE [None]
  - FEELING HOT [None]
  - DECREASED APPETITE [None]
  - VOMITING [None]
  - GLOSSODYNIA [None]
  - ANAEMIA [None]
  - GASTROINTESTINAL STROMAL TUMOUR [None]
  - FEELING COLD [None]
